FAERS Safety Report 18424599 (Version 2)
Quarter: 2021Q2

REPORT INFORMATION
  Report Type: Other
  Country: US (occurrence: US)
  Receive Date: 20201026
  Receipt Date: 20210412
  Transmission Date: 20210717
  Serious: Yes (Hospitalization)
  Sender: FDA-Public Use
  Company Number: US-ROCHE-2658959

PATIENT
  Age: 51 Year
  Sex: Male
  Weight: 72.64 kg

DRUGS (7)
  1. TOPIRAMATE. [Concomitant]
     Active Substance: TOPIRAMATE
     Indication: SEIZURE
     Dosage: ONGOING YES, IN THE MORNING AND AFTERNOON
  2. GABAPENTIN. [Concomitant]
     Active Substance: GABAPENTIN
     Indication: PAIN
  3. TAMSULOSIN [Concomitant]
     Active Substance: TAMSULOSIN
  4. AUBAGIO [Concomitant]
     Active Substance: TERIFLUNOMIDE
     Indication: MULTIPLE SCLEROSIS
  5. OCRELIZUMAB. [Suspect]
     Active Substance: OCRELIZUMAB
     Indication: RELAPSING MULTIPLE SCLEROSIS
     Dosage: 300MG IV, REPEAT 300MG IN 15 DAYS
     Route: 042
     Dates: start: 20170606
  6. OCRELIZUMAB. [Suspect]
     Active Substance: OCRELIZUMAB
     Indication: PRIMARY PROGRESSIVE MULTIPLE SCLEROSIS
     Dosage: 600 MG IV EVERY 6 MONTHS
     Route: 042
     Dates: start: 20171206
  7. OCRELIZUMAB. [Suspect]
     Active Substance: OCRELIZUMAB
     Dosage: 300MG IV, REPEAT 300MG IN 15 DAYS
     Route: 042
     Dates: start: 20170620

REACTIONS (6)
  - Status epilepticus [Unknown]
  - Multiple sclerosis [Recovered/Resolved]
  - Gait disturbance [Unknown]
  - COVID-19 [Unknown]
  - Musculoskeletal stiffness [Unknown]
  - Seizure [Unknown]

NARRATIVE: CASE EVENT DATE: 20200705
